FAERS Safety Report 6021398-7 (Version None)
Quarter: 2008Q4

REPORT INFORMATION
  Report Type: 
  Country: None (occurrence: None)
  Receive Date: 20081229
  Receipt Date: 20081219
  Transmission Date: 20090506
  Serious: Yes (Hospitalization)
  Sender: FDA-Public Use
  Company Number: B0551341A

PATIENT
  Age: 60 Year
  Sex: Female

DRUGS (1)
  1. ZOVIRAX [Suspect]
     Indication: HERPES ZOSTER
     Dosage: 600MG PER DAY
     Route: 048
     Dates: start: 20081202, end: 20081203

REACTIONS (1)
  - NERVOUS SYSTEM DISORDER [None]
